FAERS Safety Report 23259693 (Version 1)
Quarter: 2023Q4

REPORT INFORMATION
  Report Type: Spontaneous
  Country: CN (occurrence: CN)
  Receive Date: 20231204
  Receipt Date: 20231204
  Transmission Date: 20240109
  Serious: Yes (Other)
  Sender: FDA-Public Use
  Company Number: CN-PFIZER INC-PV202300193948

PATIENT
  Age: 65 Year
  Sex: Female
  Weight: 60 kg

DRUGS (4)
  1. CYTARABINE [Suspect]
     Active Substance: CYTARABINE
     Indication: Acute leukaemia
     Dosage: 0.1 G, 2X/DAY
     Route: 041
     Dates: start: 20230905, end: 20230909
  2. IDARUBICIN HYDROCHLORIDE [Suspect]
     Active Substance: IDARUBICIN HYDROCHLORIDE
     Indication: Acute leukaemia
     Dosage: 10 MG, 1X/DAY
     Route: 042
     Dates: start: 20230905, end: 20230905
  3. VORICONAZOLE [Suspect]
     Active Substance: VORICONAZOLE
     Indication: Acute leukaemia
     Dosage: 0.4 G, 2X/DAY
     Route: 041
     Dates: start: 20230907, end: 20230907
  4. AMPHOTERICIN B [Suspect]
     Active Substance: AMPHOTERICIN B
     Indication: Acute leukaemia
     Dosage: 5 MG, 2X/DAY
     Dates: start: 20230928, end: 20230930

REACTIONS (4)
  - Hypokalaemia [Recovering/Resolving]
  - Nausea [Recovering/Resolving]
  - Vomiting [Recovering/Resolving]
  - Chromatopsia [Recovering/Resolving]

NARRATIVE: CASE EVENT DATE: 20230907
